FAERS Safety Report 14672480 (Version 2)
Quarter: 2018Q2

REPORT INFORMATION
  Report Type: Spontaneous
  Country: US (occurrence: US)
  Receive Date: 20180323
  Receipt Date: 20180622
  Transmission Date: 20180711
  Serious: No
  Sender: FDA-Public Use
  Company Number: US-PFIZER INC-2018118304

PATIENT
  Age: 69 Year
  Sex: Female
  Weight: 64.41 kg

DRUGS (3)
  1. DIAZEPAM. [Suspect]
     Active Substance: DIAZEPAM
     Indication: ANXIETY
     Dosage: 2 MG, THREE TIMES A DAY
     Route: 048
     Dates: start: 201710, end: 20180425
  2. NEXIUM [Concomitant]
     Active Substance: ESOMEPRAZOLE MAGNESIUM
     Dosage: UNK
     Dates: start: 2001
  3. CITALOPRAM [Concomitant]
     Active Substance: CITALOPRAM HYDROBROMIDE
     Indication: DEPRESSION
     Dosage: 10 MG, 1X/DAY
     Dates: start: 2010

REACTIONS (9)
  - Limb discomfort [Recovering/Resolving]
  - Asthenia [Recovering/Resolving]
  - Pruritus [Recovered/Resolved]
  - Muscular weakness [Unknown]
  - Dysstasia [Unknown]
  - Pain [Recovered/Resolved]
  - Drug ineffective [Unknown]
  - Nervousness [Recovering/Resolving]
  - Drug hypersensitivity [Recovered/Resolved]

NARRATIVE: CASE EVENT DATE: 201711
